FAERS Safety Report 8438886-6 (Version None)
Quarter: 2012Q2

REPORT INFORMATION
  Report Type: 
  Country: None (occurrence: None)
  Receive Date: 20120615
  Receipt Date: 20120601
  Transmission Date: 20120825
  Serious: Yes (Hospitalization, Other)
  Sender: FDA-Public Use
  Company Number: JP-VERTEX PHARMACEUTICALS INC.-AE-2012-005292

PATIENT
  Age: 64 Year
  Sex: Male

DRUGS (14)
  1. TELAVIC (TELAPREVIR) [Suspect]
     Indication: HEPATITIS C
     Route: 048
     Dates: start: 20120224, end: 20120511
  2. PEG-INTRON [Concomitant]
     Dates: end: 20120525
  3. FAMOTIDINE [Concomitant]
     Route: 048
     Dates: start: 20120323
  4. MUCOSTA [Concomitant]
     Route: 048
     Dates: start: 20120309, end: 20120322
  5. LOXONIN [Concomitant]
     Route: 048
     Dates: start: 20120224, end: 20120224
  6. PEG-INTRON [Concomitant]
     Indication: HEPATITIS C
     Route: 051
     Dates: start: 20120224, end: 20120302
  7. LOXONIN [Concomitant]
     Dates: start: 20120225, end: 20120322
  8. PEG-INTRON [Concomitant]
     Route: 051
     Dates: start: 20120309
  9. PEG-INTRON [Concomitant]
     Route: 051
  10. MUCOSTA [Concomitant]
     Route: 048
     Dates: start: 20120519
  11. REBETOL [Concomitant]
     Route: 048
     Dates: start: 20120413, end: 20120530
  12. MIXED OINTMENT OF MYSER AND SALICYLIC ACID [Concomitant]
     Route: 061
     Dates: start: 20120227
  13. REBETOL [Concomitant]
     Indication: HEPATITIS C
     Route: 048
     Dates: start: 20120224, end: 20120412
  14. LOXONIN [Concomitant]
     Route: 048
     Dates: start: 20120519

REACTIONS (2)
  - INTERSTITIAL LUNG DISEASE [None]
  - PANCYTOPENIA [None]
